FAERS Safety Report 5911461-0 (Version None)
Quarter: 2008Q4

REPORT INFORMATION
  Report Type: 
  Country: None (occurrence: None)
  Receive Date: 20081002
  Receipt Date: 20080923
  Transmission Date: 20090506
  Serious: Yes (Other)
  Sender: FDA-Public Use
  Company Number: 08H-163-0314956-00

PATIENT
  Age: 66 Year
  Sex: Female

DRUGS (5)
  1. HYDROMORPHONE HCL [Suspect]
     Indication: POSTOPERATIVE ANALGESIA
     Dosage: INTRAVENOUS
     Route: 042
  2. BUPIVACAINE [Concomitant]
  3. 5% DEXTROSE / 0.45% SODIUM CHLORIDE (DEXTROSE AND SODIUM CHLORIDE INJE [Concomitant]
  4. DIAMOX [Concomitant]
  5. ASPIRIN [Concomitant]

REACTIONS (8)
  - APHASIA [None]
  - CEREBRAL ARTERY OCCLUSION [None]
  - CEREBRAL INFARCTION [None]
  - CEREBROVASCULAR ACCIDENT [None]
  - FACIAL PARESIS [None]
  - MONOPARESIS [None]
  - MUSCULAR WEAKNESS [None]
  - NERVOUS SYSTEM DISORDER [None]
